FAERS Safety Report 19638172 (Version 1)
Quarter: 2021Q3

REPORT INFORMATION
  Report Type: Spontaneous
  Country: US (occurrence: US)
  Receive Date: 20210730
  Receipt Date: 20210730
  Transmission Date: 20211014
  Serious: No
  Sender: FDA-Public Use
  Company Number: US-GW PHARMA-202107USGW03681

PATIENT

DRUGS (2)
  1. FLUCONAZOLE. [Concomitant]
     Active Substance: FLUCONAZOLE
     Indication: PRODUCT USED FOR UNKNOWN INDICATION
     Dosage: UNK
     Route: 065
  2. EPIDIOLEX [Suspect]
     Active Substance: CANNABIDIOL
     Indication: LENNOX-GASTAUT SYNDROME
     Dosage: UNK
     Route: 048

REACTIONS (2)
  - Product supply issue [Unknown]
  - Seizure [Not Recovered/Not Resolved]

NARRATIVE: CASE EVENT DATE: 202107
